FAERS Safety Report 12357014 (Version 1)
Quarter: 2016Q2

REPORT INFORMATION
  Report Type: Spontaneous
  Country: US (occurrence: US)
  Receive Date: 20160511
  Receipt Date: 20160511
  Transmission Date: 20160815
  Serious: No
  Sender: FDA-Public Use
  Company Number: US-ASTRAZENECA-2016SE36074

PATIENT
  Sex: Female

DRUGS (1)
  1. PRILOSEC OTC [Suspect]
     Active Substance: OMEPRAZOLE MAGNESIUM
     Dosage: UNK
     Route: 048

REACTIONS (2)
  - Product packaging issue [Unknown]
  - Product package associated injury [Not Recovered/Not Resolved]

NARRATIVE: CASE EVENT DATE: 20160403
